FAERS Safety Report 15439301 (Version 1)
Quarter: 2018Q3

REPORT INFORMATION
  Report Type: Report from Study
  Country: CZ (occurrence: CZ)
  Receive Date: 20180928
  Receipt Date: 20180928
  Transmission Date: 20181010
  Serious: Yes (Hospitalization)
  Sender: FDA-Public Use
  Company Number: CZ-IPSEN BIOPHARMACEUTICALS, INC.-2017-02262

PATIENT
  Age: 38 Year
  Sex: Male
  Weight: 90 kg

DRUGS (7)
  1. RIVOTRIL [Concomitant]
     Active Substance: CLONAZEPAM
     Route: 048
     Dates: start: 2012, end: 20170322
  2. DYSPORT [Suspect]
     Active Substance: ABOBOTULINUMTOXINA
     Indication: HEMIPARESIS
     Dosage: 1500 UNITS
     Route: 030
     Dates: start: 20170118, end: 20170118
  3. TRUND [Concomitant]
     Route: 048
     Dates: start: 2012
  4. DYSPORT [Suspect]
     Active Substance: ABOBOTULINUMTOXINA
     Indication: HEMIPARESIS
  5. FYCOMPO [Concomitant]
     Dates: start: 2017, end: 20170322
  6. DEPAKINE CHRONO [Concomitant]
     Active Substance: VALPROATE SODIUM
     Route: 048
     Dates: start: 2012
  7. TIMONIL RETARD [Concomitant]
     Active Substance: CARBAMAZEPINE
     Route: 048
     Dates: start: 2012

REACTIONS (1)
  - Epilepsy [Recovered/Resolved]

NARRATIVE: CASE EVENT DATE: 20170310
